FAERS Safety Report 8320406-8 (Version None)
Quarter: 2012Q2

REPORT INFORMATION
  Report Type: 
  Country: None (occurrence: None)
  Receive Date: 20120426
  Receipt Date: 20120426
  Transmission Date: 20120825
  Serious: Yes (Life-Threatening, Hospitalization, Disabling, Other)
  Sender: FDA-Public Use
  Company Number: None

PATIENT
  Age: 60 Year
  Sex: Female
  Weight: 72.5755 kg

DRUGS (2)
  1. METHOTREXATE [Suspect]
     Indication: LUNG NEOPLASM MALIGNANT
     Dosage: 2.5 MG. 4 TABS Q WKLY ONCE A WEEK ORAL
     Route: 048
     Dates: start: 20110501, end: 20110801
  2. METHOTREXATE [Suspect]
     Indication: HEPATIC NEOPLASM MALIGNANT
     Dosage: 2.5 MG. 4 TABS Q WKLY ONCE A WEEK ORAL
     Route: 048
     Dates: start: 20110501, end: 20110801

REACTIONS (5)
  - LUNG CANCER METASTATIC [None]
  - WEIGHT DECREASED [None]
  - ELECTROLYTE IMBALANCE [None]
  - CONFUSIONAL STATE [None]
  - METASTASES TO LIVER [None]
